FAERS Safety Report 7605864-6 (Version None)
Quarter: 2011Q3

REPORT INFORMATION
  Report Type: 
  Country: None (occurrence: None)
  Receive Date: 20110713
  Receipt Date: 20110705
  Transmission Date: 20111222
  Serious: Yes (Other)
  Sender: FDA-Public Use
  Company Number: JP-PFIZER INC-2011112982

PATIENT
  Age: 47 Year
  Sex: Male

DRUGS (8)
  1. ARGATROBAN [Suspect]
     Dosage: UNK
     Route: 041
     Dates: start: 20110413
  2. PLETAL [Suspect]
     Indication: CEREBRAL INFARCTION
     Dosage: UNK
     Route: 041
     Dates: start: 20110414
  3. WARFARIN POTASSIUM [Concomitant]
     Indication: CEREBRAL INFARCTION
     Dosage: UNK
     Route: 048
     Dates: start: 20110426
  4. CORONARY VASODILATORS [Concomitant]
     Indication: HYPERTENSION
     Route: 065
  5. EDARAVONE [Suspect]
     Indication: CEREBRAL INFARCTION
     Dosage: 60 MG DAILY
     Route: 041
     Dates: start: 20110413, end: 20110426
  6. HEPARIN SODIUM [Concomitant]
     Dosage: UNK
     Route: 041
     Dates: start: 20110416, end: 20110426
  7. INSULIN [Concomitant]
     Indication: DIABETES MELLITUS
     Route: 051
  8. ALL OTHER THERAPEUTIC PRODUCTS [Concomitant]
     Indication: HYPERLIPIDAEMIA
     Route: 065

REACTIONS (1)
  - DUODENAL ULCER [None]
